FAERS Safety Report 12233561 (Version 2)
Quarter: 2017Q2

REPORT INFORMATION
  Report Type: Spontaneous
  Country: TW (occurrence: TW)
  Receive Date: 20160404
  Receipt Date: 20170530
  Transmission Date: 20170830
  Serious: Yes (Death, Life-Threatening, Other)
  Sender: FDA-Public Use
  Company Number: TW-SUN PHARMACEUTICAL INDUSTRIES LTD-2016R1-113911

PATIENT
  Age: 75 Year
  Sex: Female

DRUGS (1)
  1. GEMCITABINE [Suspect]
     Active Substance: GEMCITABINE\GEMCITABINE HYDROCHLORIDE
     Indication: TRANSITIONAL CELL CARCINOMA
     Dosage: UNK
     Route: 065

REACTIONS (1)
  - Tumour lysis syndrome [Fatal]
